FAERS Safety Report 23318989 (Version 2)
Quarter: 2024Q1

REPORT INFORMATION
  Report Type: Spontaneous
  Country: CN (occurrence: CN)
  Receive Date: 20231220
  Receipt Date: 20240101
  Transmission Date: 20240410
  Serious: Yes (Other)
  Sender: FDA-Public Use
  Company Number: CN-HUTCHMED LIMITED-HMP2023CN01930

PATIENT
  Age: 58 Year
  Sex: Male

DRUGS (6)
  1. FRUQUINTINIB [Suspect]
     Active Substance: FRUQUINTINIB
     Indication: Rectal cancer
     Dosage: 4 MILLIGRAM, QD
     Route: 048
     Dates: start: 20230923, end: 20230930
  2. FRUQUINTINIB [Suspect]
     Active Substance: FRUQUINTINIB
     Dosage: 4 MILLIGRAM, QD
     Route: 048
     Dates: start: 20231007
  3. FRUQUINTINIB [Suspect]
     Active Substance: FRUQUINTINIB
     Dosage: 4 MILLIGRAM, QD
     Route: 048
     Dates: start: 20231117, end: 20231208
  4. OXYCODONE AND ACETAMINOPHEN [Concomitant]
     Active Substance: ACETAMINOPHEN\OXYCODONE HYDROCHLORIDE
     Indication: Pain
     Dosage: UNK
     Route: 065
  5. SODIUM ESCINATE [Concomitant]
     Active Substance: SODIUM ESCINATE
     Indication: Nerve compression
     Dosage: UNK
     Route: 065
  6. PREGABALIN [Concomitant]
     Active Substance: PREGABALIN
     Indication: Pain
     Dosage: UNK
     Route: 065

REACTIONS (6)
  - Stoma site haemorrhage [Unknown]
  - Pain [Unknown]
  - Listless [Unknown]
  - Fatigue [Unknown]
  - Gingival bleeding [Unknown]
  - Hypertension [Unknown]

NARRATIVE: CASE EVENT DATE: 20230930
